FAERS Safety Report 6593527-8 (Version None)
Quarter: 2010Q1

REPORT INFORMATION
  Report Type: 
  Country: None (occurrence: None)
  Receive Date: 20100222
  Receipt Date: 20090630
  Transmission Date: 20100710
  Serious: No
  Sender: FDA-Public Use
  Company Number: US-BRISTOL-MYERS SQUIBB COMPANY-14676944

PATIENT
  Age: 46 Year
  Sex: Female
  Weight: 86 kg

DRUGS (3)
  1. ORENCIA [Suspect]
     Indication: RHEUMATOID ARTHRITIS
     Dosage: 3VIALS:8J43443,8/2011 4VIALS:8K41832.9/2011
     Route: 042
     Dates: start: 20080421
  2. METHOTREXATE [Concomitant]
  3. PREDNISONE [Concomitant]

REACTIONS (3)
  - BRONCHITIS [None]
  - CHEST DISCOMFORT [None]
  - GRANULOMA ANNULARE [None]
